FAERS Safety Report 16638154 (Version 3)
Quarter: 2019Q3

REPORT INFORMATION
  Report Type: Report from Study
  Country: US (occurrence: US)
  Receive Date: 20190726
  Receipt Date: 20190828
  Transmission Date: 20191004
  Serious: Yes (Hospitalization)
  Sender: FDA-Public Use
  Company Number: US-JNJFOC-20190729228

PATIENT
  Age: 79 Year
  Sex: Male

DRUGS (28)
  1. IMBRUVICA [Suspect]
     Active Substance: IBRUTINIB
     Dosage: 420 MG, QD
     Route: 048
     Dates: start: 20181221
  2. ALLOPURINOL. [Concomitant]
     Active Substance: ALLOPURINOL
  3. DEPLIN [Concomitant]
     Active Substance: LEVOMEFOLATE CALCIUM
  4. PRAMIPEXOLE DIHYDROCHLORIDE. [Concomitant]
     Active Substance: PRAMIPEXOLE DIHYDROCHLORIDE
  5. PANTOPRAZOLE SODIUM. [Concomitant]
     Active Substance: PANTOPRAZOLE SODIUM
  6. DULOXETINE HYDROCHLORIDE. [Concomitant]
     Active Substance: DULOXETINE HYDROCHLORIDE
  7. CETIRIZINE HYDROCHLORIDE. [Concomitant]
     Active Substance: CETIRIZINE HYDROCHLORIDE
  8. IMBRUVICA [Suspect]
     Active Substance: IBRUTINIB
     Indication: CHRONIC LYMPHOCYTIC LEUKAEMIA
     Dosage: 420 MG, QD
     Route: 048
     Dates: start: 20180408, end: 20190717
  9. IMBRUVICA [Suspect]
     Active Substance: IBRUTINIB
     Dosage: 420 MG, QD
     Route: 048
     Dates: start: 20181123
  10. MONTELUKAST SODIUM. [Concomitant]
     Active Substance: MONTELUKAST SODIUM
  11. VITAMIN D NOS [Concomitant]
     Active Substance: VITAMIN D NOS
     Dosage: UNK (1000)
  12. KLOR-CON [Concomitant]
     Active Substance: POTASSIUM CHLORIDE
  13. CYCLOBENZAPRINE HYDROCHLORIDE. [Concomitant]
     Active Substance: CYCLOBENZAPRINE HYDROCHLORIDE
  14. TAMSULOSIN HCL [Concomitant]
     Active Substance: TAMSULOSIN HYDROCHLORIDE
  15. HYDROCODONE/ACETAMINOPHEN [Concomitant]
     Active Substance: ACETAMINOPHEN\HYDROCODONE
  16. NITROSTAT [Concomitant]
     Active Substance: NITROGLYCERIN
  17. FENOFIBRATE. [Concomitant]
     Active Substance: FENOFIBRATE
  18. MULTI VITAMIN                      /08408501/ [Concomitant]
     Active Substance: VITAMINS
  19. FISH OIL [Concomitant]
     Active Substance: FISH OIL
  20. FLONASE [Concomitant]
     Active Substance: FLUTICASONE PROPIONATE
  21. MIRTAZAPINE. [Concomitant]
     Active Substance: MIRTAZAPINE
  22. MIRALAX [Concomitant]
     Active Substance: POLYETHYLENE GLYCOL 3350
  23. AMLODIPINE BESYLATE. [Concomitant]
     Active Substance: AMLODIPINE BESYLATE
  24. FUROSEMIDE. [Concomitant]
     Active Substance: FUROSEMIDE
  25. QUETIAPINE FUMARATE. [Concomitant]
     Active Substance: QUETIAPINE FUMARATE
  26. TESTOSTERONE. [Concomitant]
     Active Substance: TESTOSTERONE
  27. DOCUSATE SODIUM. [Concomitant]
     Active Substance: DOCUSATE SODIUM
  28. PLAVIX [Concomitant]
     Active Substance: CLOPIDOGREL BISULFATE

REACTIONS (3)
  - Adverse event [Not Recovered/Not Resolved]
  - Rash [Not Recovered/Not Resolved]
  - Chest pain [Unknown]

NARRATIVE: CASE EVENT DATE: 20190714
